FAERS Safety Report 4607013-5 (Version None)
Quarter: 2005Q1

REPORT INFORMATION
  Report Type: 
  Country: None (occurrence: None)
  Receive Date: 20050309
  Receipt Date: 20050217
  Transmission Date: 20050727
  Serious: Yes (Hospitalization, Other)
  Sender: FDA-Public Use
  Company Number: USA050291391

PATIENT
  Age: 27 Year
  Sex: Male

DRUGS (3)
  1. ZYPREXA [Suspect]
     Dosage: 30 MG DAY
  2. DEPAKOTE [Concomitant]
  3. ABILIFY [Concomitant]

REACTIONS (5)
  - ALANINE AMINOTRANSFERASE INCREASED [None]
  - ASPARTATE AMINOTRANSFERASE INCREASED [None]
  - BIPOLAR DISORDER [None]
  - SCHIZOAFFECTIVE DISORDER [None]
  - WEIGHT INCREASED [None]
